FAERS Safety Report 5708761-6 (Version None)
Quarter: 2008Q2

REPORT INFORMATION
  Report Type: 
  Country: None (occurrence: None)
  Receive Date: 20080417
  Receipt Date: 20080402
  Transmission Date: 20081010
  Serious: Yes (Death)
  Sender: FDA-Public Use
  Company Number: JP-GENENTECH-258331

PATIENT
  Sex: Male
  Weight: 48 kg

DRUGS (4)
  1. AVASTIN [Suspect]
     Indication: RECTAL CANCER
     Dosage: 5 MG/KG, Q2W
     Route: 042
     Dates: start: 20071225
  2. ELAVIL [Suspect]
     Indication: RECTAL CANCER
     Dosage: 130 MG, Q2W
     Route: 042
     Dates: start: 20071225
  3. FLUOROURACIL [Suspect]
     Indication: RECTAL CANCER
     Dates: start: 20071225
  4. ISOVORIN [Suspect]
     Indication: RECTAL CANCER
     Dosage: 300 MG, Q2W
     Dates: start: 20071225

REACTIONS (1)
  - PANCYTOPENIA [None]
